FAERS Safety Report 22010532 (Version 1)
Quarter: 2023Q1

REPORT INFORMATION
  Report Type: Spontaneous
  Country: CA (occurrence: CA)
  Receive Date: 20230220
  Receipt Date: 20230220
  Transmission Date: 20230418
  Serious: Yes (Life-Threatening, Hospitalization, Other)
  Sender: FDA-Public Use
  Company Number: CA-BAXTER-2023BAX013073

PATIENT
  Age: 72 Year
  Sex: Female
  Weight: 82 kg

DRUGS (17)
  1. DOXORUBICIN [Suspect]
     Active Substance: DOXORUBICIN
     Indication: Invasive ductal breast carcinoma
     Dosage: 110 MG, ONCE (DOSAGE FORM: INJECTION)
     Route: 042
  2. CYCLOPHOSPHAMIDE [Suspect]
     Active Substance: CYCLOPHOSPHAMIDE
     Indication: Invasive ductal breast carcinoma
     Dosage: 1125 MG, ONCE (DOSAGE FORM: POWDER FOR SOLUTION INTRAVENOUS)
     Route: 042
  3. ACETAMINOPHEN [Concomitant]
     Active Substance: ACETAMINOPHEN
     Dosage: DOSAGE FORM: NOT SPECIFIED
     Route: 065
  4. CANDESARTAN [Concomitant]
     Active Substance: CANDESARTAN
     Dosage: UNK
     Route: 065
  5. CETIRIZINE [Concomitant]
     Active Substance: CETIRIZINE HYDROCHLORIDE
     Dosage: DOSAGE FORM: NOT SPECIFIED
     Route: 065
  6. DECADRON [Concomitant]
     Active Substance: DEXAMETHASONE
     Dosage: DOSAGE FORM: NOT SPECIFIED
     Route: 065
  7. DEXAMETHASONE [Concomitant]
     Active Substance: DEXAMETHASONE
     Dosage: DOSAGE FORM: NOT SPECIFIED
     Route: 065
  8. EMEND [Concomitant]
     Active Substance: APREPITANT
     Dosage: UNK
     Route: 065
  9. FILGRASTIM [Concomitant]
     Active Substance: FILGRASTIM
     Dosage: UNK
     Route: 065
  10. JARDIANCE [Concomitant]
     Active Substance: EMPAGLIFLOZIN
     Dosage: UNK
     Route: 065
  11. LORAZEPAM [Concomitant]
     Active Substance: LORAZEPAM
     Dosage: DOSAGE FORM: NOT SPECIFIED
     Route: 065
  12. METFORMIN [Concomitant]
     Active Substance: METFORMIN HYDROCHLORIDE
     Dosage: UNK
     Route: 065
  13. METOCLOPRAMIDE [Concomitant]
     Active Substance: METOCLOPRAMIDE
     Dosage: DOSAGE FORM: NOT SPECIFIED
     Route: 065
  14. NYSTATIN [Concomitant]
     Active Substance: NYSTATIN
     Dosage: DOSAGE FORM: NOT SPECIFIED
     Route: 065
  15. ONDANSETRON [Concomitant]
     Active Substance: ONDANSETRON
     Dosage: DOSAGE FORM: NOT SPECIFIED
     Route: 065
  16. TRESIBA [Concomitant]
     Active Substance: INSULIN DEGLUDEC
     Dosage: UNK
     Route: 065
  17. ZOPICLONE [Concomitant]
     Active Substance: ZOPICLONE
     Dosage: UNK
     Route: 065

REACTIONS (4)
  - Transfusion [Recovered/Resolved]
  - Febrile neutropenia [Recovered/Resolved]
  - Pyrexia [Recovered/Resolved]
  - Sepsis [Recovered/Resolved]
